FAERS Safety Report 8835258 (Version 1)
Quarter: 2012Q4

REPORT INFORMATION
  Report Type: 
  Country: US (occurrence: US)
  Receive Date: 20121011
  Receipt Date: 20121011
  Transmission Date: 20130627
  Serious: Yes (Other)
  Sender: FDA-Public Use
  Company Number: US-PFIZER INC-2012249273

PATIENT
  Age: 51 Year
  Sex: Female

DRUGS (1)
  1. PRISTIQ [Suspect]
     Dosage: UNK, every other day

REACTIONS (6)
  - Confusional state [Unknown]
  - Disorientation [Unknown]
  - Dizziness [Unknown]
  - Anxiety [Unknown]
  - Feeling abnormal [Unknown]
  - Off label use [Unknown]
